FAERS Safety Report 25440462 (Version 1)
Quarter: 2025Q2

REPORT INFORMATION
  Report Type: Spontaneous
  Country: US (occurrence: None)
  Receive Date: 20250616
  Receipt Date: 20250616
  Transmission Date: 20250717
  Serious: No
  Sender: FDA-CTU
  Company Number: None

PATIENT
  Age: 54 Year
  Sex: Male
  Weight: 81.9 kg

DRUGS (2)
  1. SERTRALINE [Suspect]
     Active Substance: SERTRALINE HYDROCHLORIDE
     Dosage: FREQUENCY : DAILY;?
     Route: 048
     Dates: start: 20250320
  2. SERTRALINE [Concomitant]
     Active Substance: SERTRALINE HYDROCHLORIDE
     Dates: start: 20250320

REACTIONS (10)
  - Adverse drug reaction [None]
  - Nausea [None]
  - Constipation [None]
  - Insomnia [None]
  - Hyperhidrosis [None]
  - Tremor [None]
  - Migraine [None]
  - Irritability [None]
  - Weight increased [None]
  - Libido disorder [None]

NARRATIVE: CASE EVENT DATE: 20250320
